FAERS Safety Report 9760038 (Version 1)
Quarter: 2013Q4

REPORT INFORMATION
  Report Type: Spontaneous
  Country: US (occurrence: US)
  Receive Date: 20131216
  Receipt Date: 20131216
  Transmission Date: 20140711
  Serious: No
  Sender: FDA-Public Use
  Company Number: US-BIOGENIDEC-2013BI099746

PATIENT
  Age: 44 Year
  Sex: Female

DRUGS (7)
  1. TECFIDERA [Suspect]
     Indication: MULTIPLE SCLEROSIS
     Route: 048
     Dates: start: 20130813
  2. ACYCLOVIR [Concomitant]
  3. CALCIUM 600 [Concomitant]
  4. FUROSEMIDE [Concomitant]
  5. WELLBUTRIN [Concomitant]
  6. BENADRYL ALLERGY [Concomitant]
  7. SUPER PROBIOTIC DIGESTIVE [Concomitant]

REACTIONS (3)
  - Contusion [Unknown]
  - Diarrhoea [Unknown]
  - Flushing [Unknown]
